FAERS Safety Report 8062575-3 (Version None)
Quarter: 2012Q1

REPORT INFORMATION
  Report Type: 
  Country: None (occurrence: None)
  Receive Date: 20120117
  Receipt Date: 20120110
  Transmission Date: 20120608
  Serious: Yes (Disabling)
  Sender: FDA-Public Use
  Company Number: 2012MA000524

PATIENT
  Age: 39 Year
  Sex: Female

DRUGS (6)
  1. DIAZEPAM [Suspect]
     Indication: PRODUCT USED FOR UNKNOWN INDICATION
     Dates: start: 20111228
  2. PRAMIPEXOLE DIHYCHLLORIDE [Concomitant]
  3. NAPROXEN [Concomitant]
  4. TRAMADOL HCL [Concomitant]
  5. CLARITHROMYCIN [Concomitant]
  6. RIGEVIDON [Concomitant]

REACTIONS (2)
  - NIGHTMARE [None]
  - TREMOR [None]
